FAERS Safety Report 5353848-3 (Version None)
Quarter: 2007Q2

REPORT INFORMATION
  Report Type: 
  Country: None (occurrence: None)
  Receive Date: 20070612
  Receipt Date: 20070531
  Transmission Date: 20071010
  Serious: No
  Sender: FDA-Public Use
  Company Number: US-ASTRAZENECA-2006UW10789

PATIENT
  Age: 558 Month
  Sex: Female
  Weight: 63.6 kg

DRUGS (8)
  1. SEROQUEL [Suspect]
     Indication: BIPOLAR DISORDER
     Route: 048
     Dates: start: 20011001, end: 20030501
  2. ABILIFY [Concomitant]
     Dates: start: 20050101, end: 20050301
  3. GEODON [Concomitant]
     Dates: start: 20030101, end: 20040101
  4. GEODON [Concomitant]
     Dates: start: 20060701
  5. HALDOL [Concomitant]
     Dates: start: 19990201, end: 19990701
  6. RISPERDAL [Concomitant]
     Dates: start: 19990801, end: 19991001
  7. TRILAFON [Concomitant]
     Dates: start: 19770101
  8. ZYPREXA [Concomitant]
     Dates: start: 19991001, end: 19991201

REACTIONS (1)
  - DIABETES MELLITUS [None]
